FAERS Safety Report 19415404 (Version 1)
Quarter: 2021Q2

REPORT INFORMATION
  Report Type: Spontaneous
  Country: CN (occurrence: CN)
  Receive Date: 20210614
  Receipt Date: 20210614
  Transmission Date: 20210717
  Serious: Yes (Life-Threatening, Other)
  Sender: FDA-Public Use
  Company Number: CN-SA-2021SA196605

PATIENT
  Age: 90 Year
  Sex: Female

DRUGS (3)
  1. BUTYLPHTHALIDE AND SODIUM CHLORIDE [Suspect]
     Active Substance: BUTYLPHTHALIDE
     Indication: CEREBRAL INFARCTION
     Dosage: 100 ML, BID
     Route: 041
     Dates: start: 20210505, end: 20210519
  2. CLOPIDOGREL BISULFATE. [Suspect]
     Active Substance: CLOPIDOGREL BISULFATE
     Indication: CEREBRAL INFARCTION
     Dosage: 75 MG, QD
     Route: 048
     Dates: start: 20210505, end: 20210519
  3. ASPIRINE [Suspect]
     Active Substance: ASPIRIN
     Indication: CEREBRAL INFARCTION
     Dosage: 0.1 G, QD
     Route: 048
     Dates: start: 20210505, end: 20210519

REACTIONS (2)
  - Cerebral infarction [Recovering/Resolving]
  - Cerebral haemorrhage [Recovering/Resolving]

NARRATIVE: CASE EVENT DATE: 20210519
